FAERS Safety Report 11655540 (Version 1)
Quarter: 2015Q4

REPORT INFORMATION
  Report Type: Spontaneous
  Country: US (occurrence: US)
  Receive Date: 20151023
  Receipt Date: 20151023
  Transmission Date: 20160304
  Serious: No
  Sender: FDA-Public Use
  Company Number: US-ASTRAZENECA-2015SE98816

PATIENT
  Sex: Male

DRUGS (1)
  1. TUDORZA PRESSAIR [Suspect]
     Active Substance: ACLIDINIUM BROMIDE
     Indication: CHRONIC OBSTRUCTIVE PULMONARY DISEASE
     Dosage: ONE PUFF, TWO TIMES A DAY
     Route: 055

REACTIONS (5)
  - Mental disorder [Unknown]
  - Drug dose omission [Unknown]
  - Tension [Unknown]
  - Product quality issue [Unknown]
  - Aggression [Unknown]

NARRATIVE: CASE EVENT DATE: 20151011
